FAERS Safety Report 25603025 (Version 2)
Quarter: 2025Q3

REPORT INFORMATION
  Report Type: Spontaneous
  Country: US (occurrence: US)
  Receive Date: 20250724
  Receipt Date: 20250825
  Transmission Date: 20251020
  Serious: Yes (Other)
  Sender: SANOFI AVENTIS
  Company Number: US-SA-2025SA211831

PATIENT
  Age: 81 Year
  Sex: Male

DRUGS (2)
  1. DUPIXENT [Suspect]
     Active Substance: DUPILUMAB
     Indication: Asthma
     Route: 058
     Dates: start: 20250612, end: 20250612
  2. DUPIXENT [Suspect]
     Active Substance: DUPILUMAB
     Indication: Chronic obstructive pulmonary disease
     Dosage: 300 MG, QOW
     Route: 058
     Dates: start: 20250627

REACTIONS (10)
  - Pneumonia [Unknown]
  - Product dose omission issue [Unknown]
  - Dry skin [Unknown]
  - Weight decreased [Unknown]
  - Decreased appetite [Unknown]
  - Dysphagia [Unknown]
  - Blood pressure decreased [Recovering/Resolving]
  - Headache [Recovering/Resolving]
  - Skin exfoliation [Unknown]
  - Eye irritation [Recovering/Resolving]

NARRATIVE: CASE EVENT DATE: 20250101
